FAERS Safety Report 7227111-X (Version None)
Quarter: 2011Q1

REPORT INFORMATION
  Report Type: 
  Country: None (occurrence: None)
  Receive Date: 20110114
  Receipt Date: 20110109
  Transmission Date: 20110831
  Serious: Yes (Death)
  Sender: FDA-Public Use
  Company Number: IL-ROCHE-752398

PATIENT
  Sex: Male
  Weight: 42 kg

DRUGS (7)
  1. PRILOSEC [Concomitant]
     Dates: start: 20100325, end: 20101013
  2. MYCOPHENOLATE MOFETIL [Suspect]
     Indication: RENAL TRANSPLANT
     Dosage: DOSE:100+500 MG,FREQUENCY REPORTED AS 2, DATE OF LST DOSE PRIOR TO SAE: 13 OCTOBER 2010
     Route: 048
     Dates: start: 20100118
  3. NORMALOL [Concomitant]
     Dates: start: 20030101, end: 20101013
  4. STEROID NOS [Suspect]
     Indication: RENAL TRANSPLANT
     Dosage: LAST DOSE PRIOR TO SAE ON 13 OCT 2010.
     Route: 048
     Dates: start: 20100118
  5. TACROLIMUS [Suspect]
     Indication: RENAL TRANSPLANT
     Dosage: DOSE: 2+1 MG, FREQUENCY: 2, DATE OF LAST DOSE PRIOR TO SAE: 13 OCTOBER 2010
     Route: 048
     Dates: start: 20100118
  6. RESPRIM FORTE [Concomitant]
     Dates: start: 20100124, end: 20101013
  7. ASPIRIN [Concomitant]
     Dates: start: 20100118, end: 20101013

REACTIONS (1)
  - SUDDEN DEATH [None]
